FAERS Safety Report 5315169-4 (Version None)
Quarter: 2007Q2

REPORT INFORMATION
  Report Type: 
  Country: None (occurrence: None)
  Receive Date: 20070502
  Receipt Date: 20070420
  Transmission Date: 20071010
  Serious: Yes (Other)
  Sender: FDA-Public Use
  Company Number: US-PFIZER INC-2007033354

PATIENT
  Sex: Female

DRUGS (2)
  1. BEXTRA [Suspect]
     Route: 048
  2. VIOXX [Suspect]
     Route: 048
     Dates: start: 20000901

REACTIONS (1)
  - CEREBROVASCULAR ACCIDENT [None]
